FAERS Safety Report 8204990-0 (Version None)
Quarter: 2012Q1

REPORT INFORMATION
  Report Type: 
  Country: None (occurrence: None)
  Receive Date: 20120313
  Receipt Date: 20120306
  Transmission Date: 20120608
  Serious: Yes (Life-Threatening, Hospitalization, Congenital Anomaly)
  Sender: FDA-Public Use
  Company Number: US-JNJFOC-20110805733

PATIENT
  Sex: Male

DRUGS (1)
  1. TOPAMAX [Suspect]
     Indication: FOETAL EXPOSURE DURING PREGNANCY
     Route: 064
     Dates: start: 20090109, end: 20090601

REACTIONS (5)
  - ORAL CAVITY FISTULA [None]
  - HYDRONEPHROSIS [None]
  - CLEFT PALATE [None]
  - MICROGNATHIA [None]
  - WEIGHT DECREASED [None]
